FAERS Safety Report 9149552 (Version 1)
Quarter: 2013Q1

REPORT INFORMATION
  Report Type: Spontaneous
  Country: ES (occurrence: ES)
  Receive Date: 20130308
  Receipt Date: 20130308
  Transmission Date: 20140127
  Serious: Yes (Hospitalization)
  Sender: FDA-Public Use
  Company Number: ES-SANOFI-AVENTIS-2013SA020919

PATIENT
  Age: 83 Year
  Sex: Female

DRUGS (9)
  1. ARAVA [Suspect]
     Indication: RHEUMATOID ARTHRITIS
     Dosage: TABLET
     Route: 048
     Dates: start: 201206, end: 20121220
  2. METOJECT [Interacting]
     Indication: RHEUMATOID ARTHRITIS
     Route: 058
     Dates: start: 2009, end: 20121220
  3. ACFOL [Concomitant]
     Indication: RHEUMATOID ARTHRITIS
     Route: 048
  4. ANAGASTRA [Concomitant]
     Route: 048
  5. AMLODIPINE [Concomitant]
     Route: 048
  6. ENALAPRIL [Concomitant]
     Route: 048
  7. ZOLPIDEM [Concomitant]
     Route: 048
  8. ARCOXIA [Concomitant]
     Route: 048
  9. GLUCOSAMINE [Concomitant]
     Route: 048

REACTIONS (2)
  - Interstitial lung disease [Recovering/Resolving]
  - Drug interaction [Unknown]
